FAERS Safety Report 18081764 (Version 1)
Quarter: 2020Q3

REPORT INFORMATION
  Report Type: Spontaneous
  Country: CZ (occurrence: CZ)
  Receive Date: 20200728
  Receipt Date: 20200728
  Transmission Date: 20201103
  Serious: Yes (Disabling, Other)
  Sender: FDA-Public Use
  Company Number: CZ-JNJFOC-20200724347

PATIENT
  Age: 39 Year
  Sex: Female

DRUGS (6)
  1. MARCAIN                            /00330102/ [Concomitant]
     Active Substance: BUPIVACAINE HYDROCHLORIDE
     Indication: PAIN
     Dosage: IN BOLUSES
     Route: 037
  2. MORPHINE [Concomitant]
     Active Substance: MORPHINE
     Indication: PAIN
     Dosage: IN BOLUSES
     Route: 037
  3. DUROGESIC [Suspect]
     Active Substance: FENTANYL
     Indication: PAIN
     Dosage: (PLASTER)
     Route: 062
  4. PREGABALIN. [Concomitant]
     Active Substance: PREGABALIN
     Indication: NEURALGIA
  5. AMITRIPTYLINE [Concomitant]
     Active Substance: AMITRIPTYLINE
     Indication: PAIN
     Dosage: FOR THE NIGHT
  6. KETAMINE [Suspect]
     Active Substance: KETAMINE
     Indication: PAIN
     Route: 065

REACTIONS (2)
  - Constipation [Not Recovered/Not Resolved]
  - Delirium [Unknown]
